FAERS Safety Report 17296787 (Version 1)
Quarter: 2020Q1

REPORT INFORMATION
  Report Type: Report from Study
  Country: US (occurrence: US)
  Receive Date: 20200122
  Receipt Date: 20200122
  Transmission Date: 20200409
  Serious: Yes (Hospitalization, Other)
  Sender: FDA-Public Use
  Company Number: US-BRISTOL-MYERS SQUIBB COMPANY-BMS-2019-110157

PATIENT
  Age: 66 Year
  Sex: Male
  Weight: 75.9 kg

DRUGS (2)
  1. NIVOLUMAB [Suspect]
     Active Substance: NIVOLUMAB
     Indication: NEOPLASM
     Dosage: 240 MILLIGRAM, ON DAY 1 , 15 AND 29, TOTAL DOSE ADMINISTERED 480 MG
     Route: 042
     Dates: start: 20191016
  2. IPILIMUMAB [Suspect]
     Active Substance: IPILIMUMAB
     Indication: NEOPLASM
     Dosage: 1 MILLIGRAM/KILOGRAM, ON DAY 1, TOTAL DOSE ADMINISTERED IS 79.5 NG
     Route: 042
     Dates: start: 20191016

REACTIONS (2)
  - Adrenal insufficiency [Recovered/Resolved with Sequelae]
  - Delirium [Recovered/Resolved with Sequelae]

NARRATIVE: CASE EVENT DATE: 20191103
